FAERS Safety Report 6565267-2 (Version None)
Quarter: 2010Q1

REPORT INFORMATION
  Report Type: 
  Country: None (occurrence: None)
  Receive Date: 20100201
  Receipt Date: 20100121
  Transmission Date: 20100710
  Serious: Yes (Death)
  Sender: FDA-Public Use
  Company Number: JP-ROCHE-674661

PATIENT
  Age: 13 Year
  Sex: Male
  Weight: 42 kg

DRUGS (7)
  1. TAMIFLU [Suspect]
     Indication: INFLUENZA
     Dosage: DRUG REPORTED AS TAMIFLU DRY SYRUP 3%(OSELTAMIVIR)
     Route: 048
     Dates: start: 20091123, end: 20091123
  2. PYRIDOXAL PHOSPHATE [Suspect]
     Indication: EPILEPSY
     Dosage: DRUG REPORTED AS PYDOXAL INJECTION(PYRIDOXAL PHOSPHATE) DOSE INCREASED.
     Route: 042
     Dates: start: 20091123, end: 20091123
  3. PYRIDOXAL PHOSPHATE [Suspect]
     Dosage: DOSE DECREASED.
     Route: 042
     Dates: start: 20091124, end: 20091202
  4. PYRIDOXAL PHOSPHATE [Suspect]
     Route: 042
     Dates: start: 20091203, end: 20091215
  5. COCARL [Concomitant]
     Route: 048
     Dates: start: 20091123, end: 20091123
  6. DIAZEPAM [Concomitant]
     Dosage: FORM: INJECTABLE (NOT OTHERWISE SPECIFIED).
     Route: 050
     Dates: start: 20091123, end: 20091123
  7. MIDAZOLAM HCL [Concomitant]
     Dosage: FORM: INJECTABLE (NOT OTHERWISE SPECIFIED).
     Route: 050
     Dates: start: 20091123, end: 20091123

REACTIONS (1)
  - REYE'S SYNDROME [None]
